FAERS Safety Report 18668269 (Version 1)
Quarter: 2020Q4

REPORT INFORMATION
  Report Type: Spontaneous
  Country: US (occurrence: US)
  Receive Date: 20201224
  Receipt Date: 20201224
  Transmission Date: 20210114
  Serious: No
  Sender: FDA-Public Use
  Company Number: None

PATIENT
  Age: 70 Year
  Sex: Male
  Weight: 97.5 kg

DRUGS (14)
  1. SUTENT [Suspect]
     Active Substance: SUNITINIB MALATE
     Indication: RENAL CANCER
     Route: 048
     Dates: start: 20201203
  2. ALLOPURINOL. [Concomitant]
     Active Substance: ALLOPURINOL
  3. AMLODIPINE BESYLATE. [Concomitant]
     Active Substance: AMLODIPINE BESYLATE
  4. ERGOCALCIFEROL. [Concomitant]
     Active Substance: ERGOCALCIFEROL
  5. MYCOPHENOLATE MOFETIL. [Concomitant]
     Active Substance: MYCOPHENOLATE MOFETIL
  6. PREDNISONE. [Concomitant]
     Active Substance: PREDNISONE
  7. SIROLIMUS. [Concomitant]
     Active Substance: SIROLIMUS
  8. ASPIRIN 81 [Concomitant]
     Active Substance: ASPIRIN
  9. DIPHENHYDRAMINE HC [Concomitant]
  10. SODIUM BICARBONATE. [Concomitant]
     Active Substance: SODIUM BICARBONATE
  11. DIPHENHYDRAMINE HC [Concomitant]
  12. BUSPIRONE HCL [Concomitant]
     Active Substance: BUSPIRONE HYDROCHLORIDE
  13. LATANOPROST. [Concomitant]
     Active Substance: LATANOPROST
  14. BRIMONIDINE TARTRATE. [Concomitant]
     Active Substance: BRIMONIDINE TARTRATE

REACTIONS (3)
  - Discomfort [None]
  - Stomatitis [None]
  - Skin irritation [None]

NARRATIVE: CASE EVENT DATE: 20201221
